FAERS Safety Report 6139935-0 (Version None)
Quarter: 2009Q2

REPORT INFORMATION
  Report Type: 
  Country: None (occurrence: None)
  Receive Date: 20090401
  Receipt Date: 20090330
  Transmission Date: 20091009
  Serious: Yes (Hospitalization, Other)
  Sender: FDA-Public Use
  Company Number: US-ELI_LILLY_AND_COMPANY-US200902003546

PATIENT
  Age: 23 Year
  Sex: Female

DRUGS (3)
  1. HUMATROPE [Suspect]
     Indication: HYPOPITUITARISM
     Dosage: 1 MG, DAILY (1/D)
     Dates: start: 20081111
  2. FOLIC ACID [Concomitant]
  3. BLOOD TRANSFUSION, AUXILIARY PRODUCTS [Concomitant]
     Indication: SICKLE CELL ANAEMIA

REACTIONS (6)
  - ANEURYSM [None]
  - COGNITIVE DISORDER [None]
  - DIZZINESS [None]
  - DYSPNOEA [None]
  - HAEMORRHAGIC STROKE [None]
  - HEADACHE [None]
